FAERS Safety Report 21283518 (Version 3)
Quarter: 2022Q3

REPORT INFORMATION
  Report Type: Spontaneous
  Country: US (occurrence: US)
  Receive Date: 20220901
  Receipt Date: 20220930
  Transmission Date: 20221027
  Serious: No
  Sender: FDA-Public Use
  Company Number: US-NOVARTISTESTPH-NVSC2022US196399

PATIENT
  Sex: Male

DRUGS (2)
  1. COSENTYX [Suspect]
     Active Substance: SECUKINUMAB
     Indication: Psoriasis
     Dosage: 300 MG, QW (2 SHOTS (150MG) A WEEK FOR 5 WEEKS)
     Route: 058
     Dates: start: 20220822
  2. COSENTYX [Suspect]
     Active Substance: SECUKINUMAB
     Indication: Psoriatic arthropathy
     Dosage: 300 MG, QW (TWO LOADING DOSES)
     Route: 065
     Dates: start: 20220916, end: 20220923

REACTIONS (1)
  - Inappropriate schedule of product administration [Not Recovered/Not Resolved]
